FAERS Safety Report 24251671 (Version 1)
Quarter: 2024Q3

REPORT INFORMATION
  Report Type: Spontaneous
  Country: TR (occurrence: TR)
  Receive Date: 20240827
  Receipt Date: 20240827
  Transmission Date: 20241016
  Serious: Yes (Hospitalization, Other)
  Sender: NOVO NORDISK
  Company Number: TR-NOVOPROD-1271788

PATIENT
  Sex: Female
  Weight: 61 kg

DRUGS (4)
  1. INSULIN ASPART\INSULIN DEGLUDEC [Suspect]
     Active Substance: INSULIN ASPART\INSULIN DEGLUDEC
     Indication: Type 2 diabetes mellitus
     Dosage: 14-15 UNITS IN THE MORNING AND 12 UNITS IN THE EVENING
  2. XARELTO [Concomitant]
     Active Substance: RIVAROXABAN
     Indication: Product used for unknown indication
     Dosage: 20 MG, QD
  3. DIGOXIN [Concomitant]
     Active Substance: DIGOXIN
     Indication: Product used for unknown indication
     Dosage: 0.25 MG, QD
  4. METOPROLOL [Concomitant]
     Active Substance: METOPROLOL
     Indication: Product used for unknown indication
     Dosage: 50 MG, QD

REACTIONS (11)
  - Pulmonary oedema [Unknown]
  - Pneumonia bacterial [Unknown]
  - Stent placement [Unknown]
  - Cardiac failure [Unknown]
  - Nausea [Unknown]
  - Abdominal pain [Unknown]
  - Taste disorder [Unknown]
  - Hypertension [Unknown]
  - Blood cholesterol abnormal [Unknown]
  - Exposure to toxic agent [Unknown]
  - Off label use [Unknown]
